FAERS Safety Report 17196645 (Version 1)
Quarter: 2019Q4

REPORT INFORMATION
  Report Type: Spontaneous
  Country: US (occurrence: US)
  Receive Date: 20191224
  Receipt Date: 20191224
  Transmission Date: 20200122
  Serious: No
  Sender: FDA-Public Use
  Company Number: US-BAUSCH-BL-2019-064260

PATIENT
  Sex: Female

DRUGS (1)
  1. LULICONAZOLE CREAM [Suspect]
     Active Substance: LULICONAZOLE
     Indication: FUNGAL INFECTION
     Route: 061
     Dates: start: 20191129, end: 20191129

REACTIONS (3)
  - Burning sensation [Recovering/Resolving]
  - Urticaria [Recovering/Resolving]
  - Erythema [Recovering/Resolving]

NARRATIVE: CASE EVENT DATE: 2019
